FAERS Safety Report 4270677-2 (Version None)
Quarter: 2004Q1

REPORT INFORMATION
  Report Type: 
  Country: None (occurrence: None)
  Receive Date: 20040114
  Receipt Date: 20040107
  Transmission Date: 20041129
  Serious: Yes (Life-Threatening, Hospitalization, Other)
  Sender: FDA-Public Use
  Company Number: WAES 0401USA00552

PATIENT
  Age: 54 Year
  Sex: Male

DRUGS (9)
  1. ASPIRIN [Concomitant]
  2. ATENOLOL [Concomitant]
  3. LIPITOR [Concomitant]
  4. BACLOFEN [Concomitant]
  5. MONOPRIL [Concomitant]
  6. CRIXIVAN [Suspect]
     Route: 048
     Dates: start: 19970101, end: 20031219
  7. ISORDIL [Concomitant]
  8. COMBIVIR [Concomitant]
  9. VITAMINS (UNSPECIFIED) [Concomitant]

REACTIONS (8)
  - BACTERAEMIA [None]
  - ESCHERICHIA SEPSIS [None]
  - HYDRONEPHROSIS [None]
  - NEPHROLITHIASIS [None]
  - PYELONEPHRITIS [None]
  - RENAL FAILURE ACUTE [None]
  - SEPTIC SHOCK [None]
  - URETERIC OBSTRUCTION [None]
